FAERS Safety Report 5353141-9 (Version None)
Quarter: 2007Q2

REPORT INFORMATION
  Report Type: 
  Country: None (occurrence: None)
  Receive Date: 20070607
  Receipt Date: 20070601
  Transmission Date: 20071010
  Serious: Yes (Death, Life-Threatening, Other)
  Sender: FDA-Public Use
  Company Number: 2007SP010797

PATIENT
  Age: 68 Year
  Sex: Male
  Weight: 58 kg

DRUGS (9)
  1. TEMODAL [Suspect]
     Indication: GLIOBLASTOMA MULTIFORME
     Dosage: 75 MG/M2;QD;PO
     Route: 048
     Dates: start: 20070111, end: 20070222
  2. BACTRIM [Suspect]
     Indication: ANTIFUNGAL PROPHYLAXIS
     Dosage: PO
     Route: 048
     Dates: start: 20070111, end: 20070222
  3. VALPROATE SODIUM [Suspect]
     Indication: PROPHYLAXIS
     Dosage: PO
     Route: 048
     Dates: start: 20061221, end: 20070225
  4. FAMOTIDINE [Suspect]
     Indication: PROPHYLAXIS
     Dates: start: 20061221, end: 20070515
  5. GLYCEOL [Concomitant]
  6. DECADRON [Concomitant]
  7. PREDNISOLONE [Concomitant]
  8. WAKOBITAL [Concomitant]
  9. MAGMITT [Concomitant]

REACTIONS (8)
  - CONVULSION [None]
  - DISEASE PROGRESSION [None]
  - HEPATIC FUNCTION ABNORMAL [None]
  - NEOPLASM PROGRESSION [None]
  - PERFORMANCE STATUS DECREASED [None]
  - PYREXIA [None]
  - RASH [None]
  - VOMITING [None]
